FAERS Safety Report 9523085 (Version 1)
Quarter: 2013Q3

REPORT INFORMATION
  Report Type: Spontaneous
  Country: US (occurrence: US)
  Receive Date: 20130913
  Receipt Date: 20130913
  Transmission Date: 20140515
  Serious: No
  Sender: FDA-Public Use
  Company Number: US-PFIZER INC-2013263362

PATIENT
  Sex: Female

DRUGS (4)
  1. NEURONTIN [Suspect]
     Dosage: UNK
  2. ATENOLOL [Concomitant]
     Dosage: UNK
  3. ASPIRIN [Concomitant]
     Dosage: UNK
  4. CALCIUM [Concomitant]
     Dosage: 1000 MG (TWO SOFT CHEWS OF 500MG), 1X/DAY

REACTIONS (2)
  - Urticaria [Unknown]
  - Drug hypersensitivity [Unknown]
